FAERS Safety Report 18841733 (Version 1)
Quarter: 2021Q1

REPORT INFORMATION
  Report Type: Spontaneous
  Country: DE (occurrence: DE)
  Receive Date: 20210203
  Receipt Date: 20210203
  Transmission Date: 20210419
  Serious: Yes (Congenital Anomaly)
  Sender: FDA-Public Use
  Company Number: DE-ALLERGAN-2105025US

PATIENT
  Sex: Female

DRUGS (4)
  1. ESCITALOPRAM OXALATE ? BP [Suspect]
     Active Substance: ESCITALOPRAM OXALATE
     Indication: EXPOSURE DURING PREGNANCY
     Dosage: 5 MG, QD
     Route: 064
     Dates: start: 20190615, end: 20190716
  2. EUTHYROX [Concomitant]
     Active Substance: LEVOTHYROXINE SODIUM
     Indication: EXPOSURE DURING PREGNANCY
     Dosage: 150 [?G/D (BIS 112 ?G/D) ]
     Route: 064
     Dates: start: 20190615, end: 20190910
  3. UTROGEST [Concomitant]
     Active Substance: PROGESTERONE
     Indication: EXPOSURE DURING PREGNANCY
     Dosage: 200 [MG/D (100?0?100) ]
     Route: 064
     Dates: start: 20190730, end: 20190801
  4. GABAPENTIN. [Suspect]
     Active Substance: GABAPENTIN
     Indication: EXPOSURE DURING PREGNANCY
     Dosage: 900 MG, QD
     Route: 064
     Dates: start: 20190615, end: 20190716

REACTIONS (5)
  - Congenital absence of vertebra [Unknown]
  - Gastroschisis [Unknown]
  - Subdural hygroma [Unknown]
  - Pregnancy [Unknown]
  - Product use in unapproved indication [Unknown]
